FAERS Safety Report 6665328-3 (Version None)
Quarter: 2010Q1

REPORT INFORMATION
  Report Type: 
  Country: None (occurrence: None)
  Receive Date: 20100323
  Receipt Date: 20100219
  Transmission Date: 20100710
  Serious: No
  Sender: FDA-Public Use
  Company Number: 100222-0000227

PATIENT
  Age: 10 Year
  Sex: Male

DRUGS (1)
  1. VIGABATRIN [Suspect]
     Indication: INFANTILE SPASMS
     Dates: end: 20091201

REACTIONS (2)
  - DRUG INEFFECTIVE [None]
  - MOVEMENT DISORDER [None]
